FAERS Safety Report 21099794 (Version 1)
Quarter: 2022Q3

REPORT INFORMATION
  Report Type: Spontaneous
  Country: CA (occurrence: CA)
  Receive Date: 20220719
  Receipt Date: 20220719
  Transmission Date: 20221027
  Serious: Yes (Other)
  Sender: FDA-Public Use
  Company Number: CA-PFIZER INC-202200960934

PATIENT
  Sex: Female

DRUGS (11)
  1. PREGABALIN [Suspect]
     Active Substance: PREGABALIN
     Dosage: UNK
     Route: 065
  2. ACETAMINOPHEN\OXYCODONE HYDROCHLORIDE [Suspect]
     Active Substance: ACETAMINOPHEN\OXYCODONE HYDROCHLORIDE
     Dosage: 5.0 MG
     Route: 048
  3. BUPRENORPHINE\NALOXONE [Suspect]
     Active Substance: BUPRENORPHINE\NALOXONE
     Indication: Pain
     Dosage: 2.0 MG
     Route: 048
  4. FENTANYL [Suspect]
     Active Substance: FENTANYL
     Dosage: UNK
     Route: 065
  5. HYDROMORPHONE HYDROCHLORIDE [Suspect]
     Active Substance: HYDROMORPHONE HYDROCHLORIDE
     Dosage: UNK
     Route: 048
  6. METHADONE [Suspect]
     Active Substance: METHADONE HYDROCHLORIDE
     Dosage: UNK
     Route: 065
  7. OXYCODONE HYDROCHLORIDE [Suspect]
     Active Substance: OXYCODONE HYDROCHLORIDE
     Indication: Breakthrough pain
     Dosage: 2.5 MG, 2X/DAY (2 EVERY 1 DAY)
     Route: 048
  8. OXYCODONE HYDROCHLORIDE [Suspect]
     Active Substance: OXYCODONE HYDROCHLORIDE
     Indication: Pain
     Dosage: 5 MG
     Route: 048
  9. OXYCODONE HYDROCHLORIDE [Suspect]
     Active Substance: OXYCODONE HYDROCHLORIDE
     Dosage: 25 UNK
     Route: 065
  10. OXYCODONE [Suspect]
     Active Substance: OXYCODONE
     Dosage: 40 MG, 2X/DAY (2 EVERY 1 DAYS)
     Route: 048
  11. OXYCODONE [Suspect]
     Active Substance: OXYCODONE
     Dosage: 20 MG, 2X/DAY (2 EVERY 1 DAYS)
     Route: 048

REACTIONS (19)
  - Breast cancer [Unknown]
  - Confusional state [Unknown]
  - Disability [Unknown]
  - Drug dependence [Unknown]
  - Drug withdrawal syndrome [Unknown]
  - Fatigue [Unknown]
  - Fibromyalgia [Unknown]
  - General physical health deterioration [Unknown]
  - Glaucoma [Unknown]
  - Hyperhidrosis [Unknown]
  - Hypertension [Unknown]
  - Myocardial ischaemia [Unknown]
  - Nausea [Unknown]
  - Osteoarthritis [Unknown]
  - Overdose [Unknown]
  - Pain [Unknown]
  - Pharyngitis [Unknown]
  - Restlessness [Unknown]
  - Vomiting [Unknown]
